FAERS Safety Report 16526292 (Version 16)
Quarter: 2024Q2

REPORT INFORMATION
  Report Type: Spontaneous
  Country: US (occurrence: US)
  Receive Date: 20190703
  Receipt Date: 20240425
  Transmission Date: 20240715
  Serious: Yes (Other)
  Sender: FDA-Public Use
  Company Number: US-SA-2019SA177575

PATIENT
  Age: 45 Year
  Sex: Male

DRUGS (16)
  1. ALPROLIX [Suspect]
     Active Substance: EFTRENONACOG ALFA
     Indication: Factor IX deficiency
     Dosage: 4750/9500 UNITS AT EVERY 12-24 HOURS
     Route: 042
  2. ALPROLIX [Suspect]
     Active Substance: EFTRENONACOG ALFA
     Indication: Factor IX deficiency
     Dosage: 4750/9500 UNITS AT EVERY 12-24 HOURS
     Route: 042
  3. ALPROLIX [Suspect]
     Active Substance: EFTRENONACOG ALFA
     Dosage: 4750 IU
     Route: 042
  4. ALPROLIX [Suspect]
     Active Substance: EFTRENONACOG ALFA
     Dosage: 4750 IU
     Route: 042
  5. ALPROLIX [Suspect]
     Active Substance: EFTRENONACOG ALFA
     Dosage: 9260 IU
     Route: 042
  6. ALPROLIX [Suspect]
     Active Substance: EFTRENONACOG ALFA
     Dosage: 9260 IU
     Route: 042
  7. ALPROLIX [Suspect]
     Active Substance: EFTRENONACOG ALFA
     Dosage: 4300 IU
     Route: 042
  8. ALPROLIX [Suspect]
     Active Substance: EFTRENONACOG ALFA
     Dosage: 4300 IU
     Route: 042
  9. ALPROLIX [Suspect]
     Active Substance: EFTRENONACOG ALFA
     Dosage: 4675 UNITS (+/-10%) EVERY 12 TO 24 HOURS AS NEEDED FOR EARLY POINT OR SOFT TISSUE BLEEDING EPISODES
     Route: 042
  10. ALPROLIX [Suspect]
     Active Substance: EFTRENONACOG ALFA
     Dosage: 4675 UNITS (+/-10%) EVERY 12 TO 24 HOURS AS NEEDED FOR EARLY POINT OR SOFT TISSUE BLEEDING EPISODES
     Route: 042
  11. ALPROLIX [Suspect]
     Active Substance: EFTRENONACOG ALFA
     Dosage: 4675 UNITS (+/-10%) WEEKLY FOR PROPHYLAXIS
     Route: 042
  12. ALPROLIX [Suspect]
     Active Substance: EFTRENONACOG ALFA
     Dosage: 4675 UNITS (+/-10%) WEEKLY FOR PROPHYLAXIS
     Route: 042
  13. ALPROLIX [Suspect]
     Active Substance: EFTRENONACOG ALFA
     Dosage: 4675 UNITS/9350 UNIT (+/- 10%), QW
     Route: 042
  14. ALPROLIX [Suspect]
     Active Substance: EFTRENONACOG ALFA
     Dosage: 4675 UNITS/9350 UNIT (+/- 10%), QW
     Route: 042
  15. ALPROLIX [Suspect]
     Active Substance: EFTRENONACOG ALFA
     Dosage: 4675 UNITS/9350 UNIT (+/- 10%), PRN (EVERY 12 TO 24 HOURS AS NEEDED)
     Route: 042
  16. ALPROLIX [Suspect]
     Active Substance: EFTRENONACOG ALFA
     Dosage: 4675 UNITS/9350 UNIT (+/- 10%), PRN (EVERY 12 TO 24 HOURS AS NEEDED)
     Route: 042

REACTIONS (12)
  - Gastrointestinal haemorrhage [Recovering/Resolving]
  - Haemorrhage [Recovered/Resolved]
  - Spontaneous haemorrhage [Unknown]
  - Haemarthrosis [Recovered/Resolved]
  - Haemorrhage [Unknown]
  - Gingival bleeding [Unknown]
  - Peripheral swelling [Unknown]
  - Pain in extremity [Unknown]
  - Joint injury [Unknown]
  - Haemorrhage [Not Recovered/Not Resolved]
  - Spontaneous haemorrhage [Unknown]
  - Haemorrhage [Unknown]

NARRATIVE: CASE EVENT DATE: 20190624
